FAERS Safety Report 8456190-7 (Version None)
Quarter: 2012Q2

REPORT INFORMATION
  Report Type: 
  Country: None (occurrence: None)
  Receive Date: 20120323
  Receipt Date: 20111130
  Transmission Date: 20120825
  Serious: Yes (Hospitalization, Other)
  Sender: FDA-Public Use
  Company Number: 163-21880-11083011

PATIENT
  Age: 83 Year
  Sex: Female
  Weight: 53.6152 kg

DRUGS (16)
  1. MIRTAZAPINE [Concomitant]
  2. LASIX [Concomitant]
  3. PLAVIX [Concomitant]
  4. FLUDROCORTISONE ACETATE [Concomitant]
  5. DEXAMETHASONE (DEXAMETHASONE) [Concomitant]
  6. FLUID (BARIUM SULFATE) [Concomitant]
  7. LUNESTA [Concomitant]
  8. BENZONATATE [Concomitant]
  9. SYNTHROID [Concomitant]
  10. STOOL SOFTENER (DOCUSATE SODIUM) [Concomitant]
  11. REVLIMID [Suspect]
     Indication: MULTIPLE MYELOMA
     Dosage: 10 MG, DAILY X 21 DAYS, PO
     Route: 048
     Dates: start: 20110604, end: 20110808
  12. ACYCLOVIR [Concomitant]
  13. ASPIRIN [Concomitant]
  14. CALCIUM CITRATE (CALCIUM CITRATE) [Concomitant]
  15. OXYCODONE HCL [Concomitant]
  16. OXYCONTIN [Concomitant]

REACTIONS (4)
  - PANCYTOPENIA [None]
  - FAILURE TO THRIVE [None]
  - FEBRILE NEUTROPENIA [None]
  - DEHYDRATION [None]
